FAERS Safety Report 21503852 (Version 2)
Quarter: 2025Q4

REPORT INFORMATION
  Report Type: Report from Study
  Country: JP (occurrence: JP)
  Receive Date: 20221025
  Receipt Date: 20251121
  Transmission Date: 20260117
  Serious: Yes (Other)
  Sender: RECORDATI
  Company Number: JP-SAMOHPHARM-2020004941

PATIENT
  Age: 0 Year
  Sex: Male
  Weight: 2.55 kg

DRUGS (25)
  1. CARBAGLU [Suspect]
     Active Substance: CARGLUMIC ACID
     Indication: Methylmalonic acidaemia
     Dosage: 600 MG/DAY, TID (235 MG/KG/DAY); BEFORE BREAKFAST, LUNCH AND DINNER
     Dates: start: 20191211, end: 20191219
  2. CARBAGLU [Suspect]
     Active Substance: CARGLUMIC ACID
     Indication: Hyperammonaemia
  3. LEVOCARNITINE [Concomitant]
     Active Substance: LEVOCARNITINE
     Indication: Product used for unknown indication
     Dosage: 260 MG/DAY, CONTINUOUS IV (107 MILLIGRAM/KILOGRAM, QD (ON DAY 6 AFTER BIRTH))
     Route: 042
     Dates: start: 20191210, end: 20191219
  4. VITAMIN B12 [Concomitant]
     Active Substance: CYANOCOBALAMIN
     Indication: Product used for unknown indication
     Dosage: 1 MILLIGRAM/KILOGRAM, QD (ON DAY 6 AFTER BIRTH)
     Route: 042
     Dates: start: 20191210, end: 20191219
  5. ARGININE [Concomitant]
     Active Substance: ARGININE
     Indication: Product used for unknown indication
     Dosage: 7.2 ML/CONTINUOUS IV/DAY (288 MILLIGRAM/KILOGRAM, QD (BEFORE CARBAGLU ADMINISTRATION))
     Route: 042
     Dates: start: 20191210, end: 20191219
  6. DOBUTREX [Concomitant]
     Active Substance: DOBUTAMINE HYDROCHLORIDE
     Indication: Product used for unknown indication
     Dosage: 0.18 ML/CONTINUOUS IV/DAY (100 MG/5 ML INJECTION)
     Route: 042
     Dates: start: 20191210, end: 20191219
  7. HYDROCORTISONE [Concomitant]
     Active Substance: HYDROCORTISONE
     Indication: Product used for unknown indication
     Dosage: UNK
  8. CALCIUM GLUCONATE [Concomitant]
     Active Substance: CALCIUM GLUCONATE
     Indication: Hypocalcaemia
     Dosage: 13 ML/CONTINUOUS IV/DAY (INJECTION 8.5 PERCENT)
     Route: 042
     Dates: start: 20191210, end: 20191219
  9. CALCIUM GLUCONATE [Concomitant]
     Active Substance: CALCIUM GLUCONATE
     Indication: Prophylaxis
  10. FENTANYL [Concomitant]
     Active Substance: FENTANYL
     Indication: Sedation
     Dosage: 1.2 ML/CONTINUOUS IV/DAY (INJECTION)
     Route: 042
     Dates: start: 20191210, end: 20191219
  11. MIDAZOLAM [Concomitant]
     Active Substance: MIDAZOLAM
     Indication: Sedation
     Dosage: 1.2 ML/CONTINUOUS IV/DAY (INJECTION)
     Route: 042
     Dates: start: 20191210, end: 20191219
  12. DOPAMINE [Concomitant]
     Active Substance: DOPAMINE HYDROCHLORIDE
     Indication: Product used for unknown indication
     Dosage: 0.18 ML/CONTINUOUS IV/DAY (100 MG/5 ML INJECTION)
     Route: 042
     Dates: start: 20191210, end: 20191219
  13. SOYBEAN OIL [Concomitant]
     Active Substance: SOYBEAN OIL
     Indication: Product used for unknown indication
     Dosage: 24 ML/CONTINUOUS IV/DAY (20 PERCENT INJECTION)
     Route: 042
     Dates: start: 20191210, end: 20191219
  14. CYANOCOBALAMIN\PYRIDOXINE HYDROCHLORIDE\THIAMINE [Concomitant]
     Active Substance: CYANOCOBALAMIN\PYRIDOXINE HYDROCHLORIDE\THIAMINE
     Indication: Product used for unknown indication
     Dosage: 3 DOSAGE FORM, TID INJECTION (3 VIALS/3 TIMES/DAY)
     Dates: start: 20191210, end: 20191219
  15. CYANOCOBALAMIN\PYRIDOXINE HYDROCHLORIDE\THIAMINE [Concomitant]
     Active Substance: CYANOCOBALAMIN\PYRIDOXINE HYDROCHLORIDE\THIAMINE
     Indication: Supplementation therapy
  16. HUMULIN R [Concomitant]
     Active Substance: INSULIN HUMAN
     Indication: Product used for unknown indication
     Dosage: APPROXIMATELY 3 IU/CONTINUOUS IV/DAY (INJECTION 100 UNITS/ML)
     Route: 042
     Dates: start: 20191210, end: 20191219
  17. MEYLON [Concomitant]
     Active Substance: SODIUM BICARBONATE
     Indication: Product used for unknown indication
     Dosage: 2.5 ML/TIME/DAY (INJECTION 7 PERCENT)
     Dates: start: 20191210, end: 20191219
  18. FAMOTIDINE [Concomitant]
     Active Substance: FAMOTIDINE
     Indication: Chronic gastrointestinal bleeding
     Dosage: 1.2 MG, BID (FAMOTIDINE, INJECTION 20 MG)
     Dates: start: 20191210, end: 20191219
  19. FAMOTIDINE [Concomitant]
     Active Substance: FAMOTIDINE
     Indication: Prophylaxis
  20. Cinal [Concomitant]
     Indication: Product used for unknown indication
     Dosage: 1.3 GRAM, TID (COMBINATION GRANULES)
     Dates: start: 20191210, end: 20191219
  21. Cinal [Concomitant]
     Indication: Hyperammonaemia
  22. JUVELA [Concomitant]
     Active Substance: .ALPHA.-TOCOPHEROL\RETINOL
     Indication: Product used for unknown indication
     Dosage: 1.3 GRAM, TID (GRANULES 200 MG/G)
     Dates: start: 20191210, end: 20191219
  23. VITAMIN B1 [Concomitant]
     Active Substance: THIAMINE HYDROCHLORIDE
     Indication: Supplementation therapy
     Dosage: UNK
     Route: 042
  24. VITAMIN C [Concomitant]
     Active Substance: ASCORBIC ACID
     Indication: Supplementation therapy
     Dosage: UNK
  25. VITAMIN E [Concomitant]
     Active Substance: .ALPHA.-TOCOPHEROL
     Indication: Supplementation therapy
     Dosage: UNK

REACTIONS (7)
  - Dermatitis exfoliative generalised [Recovered/Resolved]
  - Platelet count decreased [Recovered/Resolved]
  - Anaemia [Recovered/Resolved]
  - Hypotension [Recovered/Resolved]
  - Bacterial infection [Not Recovered/Not Resolved]
  - Metabolic acidosis [Recovered/Resolved]
  - Blood lactic acid increased [Recovered/Resolved]

NARRATIVE: CASE EVENT DATE: 20191211
